FAERS Safety Report 21886974 (Version 1)
Quarter: 2023Q1

REPORT INFORMATION
  Report Type: Report from Study
  Country: US (occurrence: US)
  Receive Date: 20230119
  Receipt Date: 20230119
  Transmission Date: 20230418
  Serious: Yes (Other)
  Sender: FDA-Public Use
  Company Number: US-JAZZ-2022-US-036421

PATIENT
  Sex: Female

DRUGS (23)
  1. XYREM [Suspect]
     Active Substance: SODIUM OXYBATE
     Indication: Narcolepsy
     Dosage: 3 GRAM, BID
     Dates: start: 201701
  2. XYREM [Suspect]
     Active Substance: SODIUM OXYBATE
     Dosage: 3 GRAM AT BEDTIME AND 4.5 GRAM 3-4 HOURS LATER
  3. XYREM [Suspect]
     Active Substance: SODIUM OXYBATE
     Dosage: 2.75 GRAM AT BEDTIME AND 3.75 GRAM EVERY 4 HOURS
  4. XYREM [Suspect]
     Active Substance: SODIUM OXYBATE
     Dosage: 3.25 GRAM AT BEDTIME AND 3.75 GRAM 4 HOURS
  5. XYREM [Suspect]
     Active Substance: SODIUM OXYBATE
     Dosage: 2.25 GRAM AT BEDTIME, 2.75 GRAM TO HALF TO 4 HOURS LATER
  6. XYREM [Suspect]
     Active Substance: SODIUM OXYBATE
     Dosage: 3.25 GRAM AT BEDTIME AND 3.75 GRAM 2 TO 4 HOURS LATER
  7. XYREM [Suspect]
     Active Substance: SODIUM OXYBATE
     Dosage: 4.5 GRAM, QD
  8. ADDERALL [Suspect]
     Active Substance: AMPHETAMINE ASPARTATE\AMPHETAMINE SULFATE\DEXTROAMPHETAMINE SACCHARATE\DEXTROAMPHETAMINE SULFATE
     Indication: Product used for unknown indication
     Dosage: UNK
  9. MODAFINIL [Concomitant]
     Active Substance: MODAFINIL
     Indication: Product used for unknown indication
     Dosage: UNK
     Dates: start: 20180611
  10. SPIRONOLACTONE [Concomitant]
     Active Substance: SPIRONOLACTONE
     Dosage: 0000
     Dates: start: 20160629
  11. HYDROXYCHLOROQUINE SULFATE [Concomitant]
     Active Substance: HYDROXYCHLOROQUINE SULFATE
     Dosage: 0000
     Dates: start: 20160629
  12. ZOLOFT [Concomitant]
     Active Substance: SERTRALINE HYDROCHLORIDE
     Dosage: 0000
     Dates: start: 20160610
  13. OLANZAPINE [Concomitant]
     Active Substance: OLANZAPINE
     Dosage: 0000
     Dates: start: 20191101
  14. ALCOHOL [Concomitant]
     Active Substance: ALCOHOL
     Dosage: 0000
     Dates: start: 20200101
  15. SUNOSI [Concomitant]
     Active Substance: SOLRIAMFETOL
     Indication: Product used for unknown indication
     Dosage: UNK
  16. NUVARING [Concomitant]
     Active Substance: ETHINYL ESTRADIOL\ETONOGESTREL
     Indication: Contraception
     Dosage: UNK
  17. PROZAC [Concomitant]
     Active Substance: FLUOXETINE HYDROCHLORIDE
     Indication: Product used for unknown indication
     Dosage: 20 MG
  18. PROZAC [Concomitant]
     Active Substance: FLUOXETINE HYDROCHLORIDE
     Dosage: 40 MG
  19. PROZAC [Concomitant]
     Active Substance: FLUOXETINE HYDROCHLORIDE
     Dosage: 60 MG
  20. METROGEL [Concomitant]
     Active Substance: METRONIDAZOLE
     Dosage: UNK
  21. ZYPREXA [Concomitant]
     Active Substance: OLANZAPINE
     Indication: Product used for unknown indication
     Dosage: UNK
  22. FISH OIL [Concomitant]
     Active Substance: FISH OIL
     Dosage: UNK
  23. METRONIDAZOLE [Concomitant]
     Active Substance: METRONIDAZOLE
     Indication: Product used for unknown indication
     Dosage: UNK

REACTIONS (7)
  - Nephrolithiasis [Unknown]
  - Weight decreased [Recovering/Resolving]
  - Anxiety [Unknown]
  - Decreased appetite [Unknown]
  - Somnolence [Unknown]
  - Fatigue [Unknown]
  - Intentional product use issue [Unknown]
